FAERS Safety Report 22175774 (Version 1)
Quarter: 2023Q2

REPORT INFORMATION
  Report Type: Spontaneous
  Country: CR (occurrence: CR)
  Receive Date: 20230405
  Receipt Date: 20230405
  Transmission Date: 20230722
  Serious: Yes (Other)
  Sender: FDA-Public Use
  Company Number: CR-APOTEX-2023AP006502

PATIENT
  Age: 78 Year
  Sex: Male

DRUGS (9)
  1. FLUOXETINE [Interacting]
     Active Substance: FLUOXETINE HYDROCHLORIDE
     Indication: Antidepressant discontinuation syndrome
     Dosage: UNK, SOMETIMES TOOK 2 CAPSULES AND IN OTHERS 3 CAPSULES (60 MG)
     Route: 065
     Dates: start: 202206
  2. OMEPRAZOLE [Interacting]
     Active Substance: OMEPRAZOLE
     Indication: Hypertension
     Dosage: UNK, QD (IF NECESSARY)
     Route: 065
  3. DIMENHYDRINATE [Interacting]
     Active Substance: DIMENHYDRINATE
     Indication: Nausea
     Dosage: UNK, EVERY 8 HOURS FOR 10 DAYS, EVEN INCREASING THE DOSAGE TO EVERY 6 HOURS
     Route: 065
     Dates: start: 202206
  4. ENALAPRIL [Concomitant]
     Active Substance: ENALAPRIL
     Indication: Hypertension
     Dosage: UNK, QD
     Route: 065
  5. FAMOTIDINE [Concomitant]
     Active Substance: FAMOTIDINE
     Indication: Dyspepsia
     Dosage: UNK, QD, IF NECESSARY
     Route: 065
  6. ALKA-SELTZER [Concomitant]
     Active Substance: ANHYDROUS CITRIC ACID\ASPIRIN\SODIUM BICARBONATE
     Indication: Dyspepsia
     Dosage: UNK, QD, IF NECESSARY
     Route: 065
  7. METFORMIN [Concomitant]
     Active Substance: METFORMIN HYDROCHLORIDE
     Indication: Diabetes mellitus
     Dosage: UNK, QD
     Route: 065
  8. LOVASTATIN [Concomitant]
     Active Substance: LOVASTATIN
     Indication: Hypercholesterolaemia
     Dosage: UNK, Q.AM
     Route: 065
  9. HYDROXYUREA [Concomitant]
     Active Substance: HYDROXYUREA
     Indication: Thrombosis
     Dosage: UNK, QD
     Route: 065
     Dates: start: 202204

REACTIONS (12)
  - Cholinergic syndrome [Recovering/Resolving]
  - Serotonin syndrome [Recovering/Resolving]
  - Drug interaction [Recovering/Resolving]
  - Self-medication [Recovering/Resolving]
  - Amnesia [Recovering/Resolving]
  - Visual impairment [Recovering/Resolving]
  - Pollakiuria [Recovering/Resolving]
  - Tachycardia [Recovering/Resolving]
  - Fall [Unknown]
  - Decreased appetite [Recovering/Resolving]
  - Nausea [Recovering/Resolving]
  - Tremor [Recovering/Resolving]

NARRATIVE: CASE EVENT DATE: 20220601
